FAERS Safety Report 14498968 (Version 1)
Quarter: 2018Q1

REPORT INFORMATION
  Report Type: Spontaneous
  Country: CH (occurrence: CH)
  Receive Date: 20180207
  Receipt Date: 20180207
  Transmission Date: 20180509
  Serious: Yes (Hospitalization)
  Sender: FDA-Public Use
  Company Number: CH-ELI_LILLY_AND_COMPANY-CH201802000136

PATIENT
  Age: 54 Year
  Sex: Female

DRUGS (5)
  1. AVAMYS [Concomitant]
     Active Substance: FLUTICASONE FUROATE
     Dosage: 1 DF, ONE OR TWO TIMES PER DAY
     Route: 045
  2. SIFROL [Concomitant]
     Active Substance: PRAMIPEXOLE
     Dosage: .125 MG, BID
     Route: 048
  3. LODINE [Suspect]
     Active Substance: ETODOLAC
     Indication: ANALGESIC THERAPY
     Dosage: 1 DF, PRN
     Route: 048
     Dates: start: 20171211, end: 20171215
  4. FLUCTINE 20MG [Suspect]
     Active Substance: FLUOXETINE HYDROCHLORIDE
     Indication: PANIC DISORDER
     Dosage: 20 MG, DAILY
     Route: 048
     Dates: end: 20171215
  5. ALGIFOR [Suspect]
     Active Substance: IBUPROFEN
     Indication: ANALGESIC THERAPY
     Dosage: 1 DF, PRN
     Route: 048
     Dates: start: 20171211, end: 20171215

REACTIONS (4)
  - Normochromic normocytic anaemia [Unknown]
  - Herpes simplex [Recovered/Resolved]
  - Off label use [Unknown]
  - Agranulocytosis [Recovered/Resolved]

NARRATIVE: CASE EVENT DATE: 201712
